FAERS Safety Report 22645610 (Version 9)
Quarter: 2024Q1

REPORT INFORMATION
  Report Type: Spontaneous
  Country: CA (occurrence: CA)
  Receive Date: 20230627
  Receipt Date: 20240314
  Transmission Date: 20240409
  Serious: Yes (Other)
  Sender: FDA-Public Use
  Company Number: CA-PFIZER INC-PV202200054724

PATIENT
  Age: 56 Year
  Sex: Female
  Weight: 84.5 kg

DRUGS (10)
  1. IBRANCE [Suspect]
     Active Substance: PALBOCICLIB
     Indication: Breast cancer metastatic
     Dosage: 125 MG, CYCLIC (DAILY FOR 21 DAYS THEN STOP FOR 7 DAYS)
     Route: 048
     Dates: start: 20220806
  2. IBRANCE [Suspect]
     Active Substance: PALBOCICLIB
     Dosage: 125 MG, CYCLIC(FOR 21DAYS THEN STOP FOR 7 DAYS)
     Route: 048
  3. IBRANCE [Suspect]
     Active Substance: PALBOCICLIB
     Dosage: 125 MG, CYCLIC (BY MOUTH FOR 21 DAYS THEN STOP FOR 7 DAYS)
     Route: 048
  4. IBRANCE [Suspect]
     Active Substance: PALBOCICLIB
     Dosage: 125 MG, CYCLIC (BY MOUTH FOR 21 DAYS THEN STOP FOR 7 DAYS)
     Route: 048
  5. LETROZOLE [Concomitant]
     Active Substance: LETROZOLE
     Indication: Breast cancer metastatic
     Dosage: 2.5 MG
  6. LETROZOLE [Concomitant]
     Active Substance: LETROZOLE
     Dosage: UNK, CYCLIC (CYCLE: DAY 1, CYCLE 14)
  7. LETROZOLE [Concomitant]
     Active Substance: LETROZOLE
     Dosage: UNK, CYCLIC (CYCLE: DAY 1, CYCLE 18)
  8. LETROZOLE [Concomitant]
     Active Substance: LETROZOLE
     Dosage: UNK, CYCLIC (CYCLE: DAY 1, CYCLE 19)
  9. LETROZOLE [Concomitant]
     Active Substance: LETROZOLE
     Dosage: UNK, CYCLIC (CYCLE: DAY 1, CYCLE 21)
  10. LETROZOLE [Concomitant]
     Active Substance: LETROZOLE
     Dosage: UNK, CYCLIC (CYCLE: DAY 1, CYCLE 22)

REACTIONS (10)
  - Hydronephrosis [Unknown]
  - Pyelocaliectasis [Unknown]
  - Weight fluctuation [Not Recovered/Not Resolved]
  - Pain [Recovering/Resolving]
  - Cholelithiasis [Unknown]
  - Accessory spleen [Unknown]
  - Renal cyst [Unknown]
  - Pulmonary granuloma [Unknown]
  - Lymphadenopathy [Recovering/Resolving]
  - Hepatic steatosis [Unknown]

NARRATIVE: CASE EVENT DATE: 20220831
